FAERS Safety Report 9252710 (Version 1)
Quarter: 2013Q1

REPORT INFORMATION
  Report Type: Spontaneous
  Country: US (occurrence: None)
  Receive Date: 20130305
  Receipt Date: 20130305
  Transmission Date: 20140127
  Serious: Yes (Other)
  Sender: FDA-Public Use
  Company Number: 163-21880-12042102 (0)

PATIENT
  Age: 69 Year
  Sex: Female
  Weight: 82.1 kg

DRUGS (16)
  1. REVLIMID [Suspect]
     Indication: PLASMA CELL MYELOMA
     Dosage: 21 IN 21 D
     Route: 048
     Dates: start: 20120120
  2. PROPHYLACTIC ASPIRIN (ACETYLSALICYLIC ACID) [Concomitant]
  3. AZITHROMYCIN (AZITHROMYCIN) [Concomitant]
  4. AMERGE (NARATRIPTAN HYDROCHLORIDE) [Concomitant]
  5. ARMOUR THYROID (THYROID) [Concomitant]
  6. DEXAMETHASONE (DEXAMETHASONE) [Concomitant]
  7. LIDODERM (LIDOCAINE) (POULTICE OR PATCH) [Concomitant]
  8. LIPITOR (ATORVASTATIN) [Concomitant]
  9. VITAMINS [Concomitant]
  10. NEURONTIN (GABAPENTIN) [Concomitant]
  11. VITAMIN D (ERGOCALCIFEROL) [Concomitant]
  12. COZAAR (LOSARTAN POTASSIUM) (50 MILLIGRAM, TABLETS) (LOSARTAN POTASSIUM) [Concomitant]
  13. LASIX (FUROSEMIDE) [Concomitant]
  14. POTASSIUM CHLORIDE (POTASSIUM CHLORIDE) [Concomitant]
  15. LOVENOX (HEPARIN-FRACTION, SODIUM SALT) [Concomitant]
  16. ZOMETA (ZOLEDRONIC ACID) [Concomitant]

REACTIONS (3)
  - Deep vein thrombosis [None]
  - Rash vesicular [None]
  - Neutropenia [None]
